FAERS Safety Report 11809892 (Version 1)
Quarter: 2015Q4

REPORT INFORMATION
  Report Type: Spontaneous
  Country: DE (occurrence: DE)
  Receive Date: 20151208
  Receipt Date: 20151208
  Transmission Date: 20160305
  Serious: Yes (Other)
  Sender: FDA-Public Use
  Company Number: DE-BRISTOL-MYERS SQUIBB COMPANY-2001SUS0555

PATIENT
  Age: 27 Year
  Sex: Female

DRUGS (3)
  1. SUSTIVA [Suspect]
     Active Substance: EFAVIRENZ
     Indication: HIV INFECTION
     Dosage: UNK
     Route: 048
  2. ZIDOVUDINE. [Suspect]
     Active Substance: ZIDOVUDINE
     Indication: HIV INFECTION
     Dosage: UNK UNK
     Route: 065
     Dates: start: 19980501
  3. LAMIVUDINE. [Suspect]
     Active Substance: LAMIVUDINE
     Indication: HIV INFECTION
     Dosage: UNK UNK
     Route: 065
     Dates: start: 19980501

REACTIONS (4)
  - Live birth [Unknown]
  - Caesarean section [Unknown]
  - Pregnancy [Recovered/Resolved]
  - Premature rupture of membranes [Recovered/Resolved]
